FAERS Safety Report 5667189-8 (Version None)
Quarter: 2008Q1

REPORT INFORMATION
  Report Type: 
  Country: None (occurrence: None)
  Receive Date: 20080315
  Receipt Date: 20080115
  Transmission Date: 20080703
  Serious: No
  Sender: FDA-Public Use
  Company Number: US-ABBOTT-08P-163-0433734-00

PATIENT
  Sex: Female
  Weight: 123.49 kg

DRUGS (2)
  1. HUMIRA [Suspect]
     Indication: RHEUMATOID ARTHRITIS
     Route: 058
     Dates: start: 20071201
  2. HUMIRA [Suspect]

REACTIONS (1)
  - ACCIDENTAL EXPOSURE [None]
